FAERS Safety Report 6651606-0 (Version None)
Quarter: 2010Q1

REPORT INFORMATION
  Report Type: 
  Country: None (occurrence: None)
  Receive Date: 20100309
  Receipt Date: 20091201
  Transmission Date: 20100710
  Serious: No
  Sender: FDA-Public Use
  Company Number: 2009SP039523

PATIENT
  Age: 28 Year
  Sex: Female

DRUGS (1)
  1. SAPHRIS [Suspect]
     Indication: HYPOMANIA
     Dosage: 10 MG;HS
     Dates: start: 20091027, end: 20091120

REACTIONS (1)
  - HYPOAESTHESIA ORAL [None]
